FAERS Safety Report 16670402 (Version 1)
Quarter: 2019Q3

REPORT INFORMATION
  Report Type: Spontaneous
  Country: FR (occurrence: FR)
  Receive Date: 20190805
  Receipt Date: 20190805
  Transmission Date: 20191004
  Serious: Yes (Other)
  Sender: FDA-Public Use
  Company Number: FR-TEVA-2019-FR-1087563

PATIENT
  Age: 64 Year
  Sex: Female
  Weight: 49 kg

DRUGS (4)
  1. TANGANIL 500 MG, COMPRIM? [Suspect]
     Active Substance: ACETYLLEUCINE
     Indication: VERTIGO
     Dosage: 2DOSAGE FORMS
     Route: 048
     Dates: start: 20190314, end: 20190409
  2. ATORVASTATINE [Suspect]
     Active Substance: ATORVASTATIN
     Indication: PROPHYLAXIS
     Dosage: 80MG
     Route: 048
     Dates: start: 20190313, end: 20190409
  3. COUMADINE 2 MG, COMPRIM? S?CABLE [Concomitant]
     Active Substance: WARFARIN SODIUM
     Indication: ANTIPHOSPHOLIPID SYNDROME
     Dosage: SELON INR
     Route: 048
     Dates: start: 20190314
  4. ALPRAZOLAM. [Suspect]
     Active Substance: ALPRAZOLAM
     Indication: INSOMNIA
     Dosage: 0.25MG
     Route: 048
     Dates: start: 20190320, end: 20190409

REACTIONS (2)
  - Cholestatic liver injury [Recovering/Resolving]
  - Eosinophilia [Recovered/Resolved]

NARRATIVE: CASE EVENT DATE: 20190405
